FAERS Safety Report 20013654 (Version 1)
Quarter: 2021Q4

REPORT INFORMATION
  Report Type: Spontaneous
  Country: NO (occurrence: NO)
  Receive Date: 20211029
  Receipt Date: 20211029
  Transmission Date: 20220304
  Serious: Yes (Hospitalization)
  Sender: FDA-Public Use
  Company Number: None

PATIENT
  Age: 43 Year
  Sex: Male

DRUGS (4)
  1. DYMISTA [Interacting]
     Active Substance: AZELASTINE HYDROCHLORIDE\FLUTICASONE PROPIONATE
     Indication: Hypersensitivity
     Dosage: 1 DOSAGE FORM, QD
     Route: 045
     Dates: start: 20210201, end: 20210622
  2. XOLAIR [Interacting]
     Active Substance: OMALIZUMAB
     Indication: Urticaria chronic
     Dosage: 150 MILLIGRAM
     Route: 058
     Dates: start: 20200601, end: 20210401
  3. COMIRNATY [Interacting]
     Active Substance: TOZINAMERAN
     Indication: Immunisation
     Dosage: UNK (DOSE NO. IN SERIES: NOT APPLICABLE)
     Route: 030
     Dates: start: 20210521
  4. EBASTINE [Interacting]
     Active Substance: EBASTINE
     Indication: Urticaria chronic
     Dosage: UNK (5MG, 2-4 TABLETS DAILY)
     Route: 048
     Dates: start: 20200401, end: 20210522

REACTIONS (11)
  - Bell^s palsy [Unknown]
  - Vision blurred [Unknown]
  - Presyncope [Unknown]
  - Malaise [Unknown]
  - Muscle contractions involuntary [Unknown]
  - Dizziness [Not Recovered/Not Resolved]
  - Tinnitus [Not Recovered/Not Resolved]
  - Headache [Recovered/Resolved]
  - Eye irritation [Unknown]
  - COVID-19 immunisation [Unknown]
  - Drug interaction [Unknown]

NARRATIVE: CASE EVENT DATE: 20210521
